APPROVED DRUG PRODUCT: METHDILAZINE HYDROCHLORIDE
Active Ingredient: METHDILAZINE HYDROCHLORIDE
Strength: 4MG/5ML
Dosage Form/Route: SYRUP;ORAL
Application: A087122 | Product #001
Applicant: ALPHARMA US PHARMACEUTICALS DIVISION
Approved: Approved Prior to Jan 1, 1982 | RLD: No | RS: No | Type: DISCN